FAERS Safety Report 21964111 (Version 1)
Quarter: 2023Q1

REPORT INFORMATION
  Report Type: Spontaneous
  Country: FR (occurrence: FR)
  Receive Date: 20230207
  Receipt Date: 20230207
  Transmission Date: 20230417
  Serious: Yes (Other)
  Sender: FDA-Public Use
  Company Number: None

PATIENT
  Age: 32 Year
  Sex: Male
  Weight: 88 kg

DRUGS (2)
  1. PROPOFOL [Suspect]
     Active Substance: PROPOFOL
     Indication: Anaesthesia
     Dosage: DOSE UNKNOWN; ?FORM OF ADMIN: 1 FP
     Route: 042
     Dates: start: 20220412, end: 20220412
  2. TRACRIUM [Concomitant]
     Active Substance: ATRACURIUM BESYLATE
     Indication: General anaesthesia
     Dosage: NON CONNUE / DOSE UNKNOWN
     Route: 042
     Dates: start: 20220412, end: 20220412

REACTIONS (3)
  - Drug dose omission by device [Recovered/Resolved with Sequelae]
  - Post-traumatic stress disorder [Not Recovered/Not Resolved]
  - Pain [Recovering/Resolving]

NARRATIVE: CASE EVENT DATE: 20220412
